FAERS Safety Report 6230814-7 (Version None)
Quarter: 2009Q2

REPORT INFORMATION
  Report Type: 
  Country: None (occurrence: None)
  Receive Date: 20090611
  Receipt Date: 20090611
  Transmission Date: 20091009
  Serious: Yes (Hospitalization, Disabling)
  Sender: FDA-Public Use
  Company Number: None

PATIENT
  Age: 50 Year
  Sex: Female
  Weight: 77.1115 kg

DRUGS (6)
  1. BUDEPRION SR 150 MG TABLET TEVA USA [Suspect]
     Indication: DEPRESSION
     Dosage: 1 TABLET TWICE A DAY
     Dates: start: 20080122
  2. BUDEPRION SR 150 MG TABLET TEVA USA [Suspect]
     Indication: FIBROMYALGIA
     Dosage: 1 TABLET TWICE A DAY
     Dates: start: 20080122
  3. BUDEPRION SR 150 MG TABLET TEVA USA [Suspect]
     Indication: PAIN
     Dosage: 1 TABLET TWICE A DAY
     Dates: start: 20080122
  4. BUDEPRION SR 150 MG TABLET TEVA USA [Suspect]
     Indication: DEPRESSION
     Dosage: 1 TABLET TWICE A DAY
     Dates: start: 20080205
  5. BUDEPRION SR 150 MG TABLET TEVA USA [Suspect]
     Indication: FIBROMYALGIA
     Dosage: 1 TABLET TWICE A DAY
     Dates: start: 20080205
  6. BUDEPRION SR 150 MG TABLET TEVA USA [Suspect]
     Indication: PAIN
     Dosage: 1 TABLET TWICE A DAY
     Dates: start: 20080205

REACTIONS (2)
  - GASTRIC DISORDER [None]
  - IRRITABLE BOWEL SYNDROME [None]
